FAERS Safety Report 23116017 (Version 2)
Quarter: 2023Q4

REPORT INFORMATION
  Report Type: Other
  Country: US (occurrence: None)
  Receive Date: 20231027
  Receipt Date: 20231125
  Transmission Date: 20240110
  Serious: Yes (Other)
  Sender: FDA-Public Use
  Company Number: US-ROCHE-2779807

PATIENT
  Age: 88 Year
  Sex: Female
  Weight: 77.18 kg

DRUGS (5)
  1. RITUXAN [Suspect]
     Active Substance: RITUXIMAB
     Indication: Immune system disorder
     Route: 042
  2. RITUXAN [Suspect]
     Active Substance: RITUXIMAB
     Indication: Immunosuppression
  3. CELLCEPT [Suspect]
     Active Substance: MYCOPHENOLATE MOFETIL
     Indication: Immunosuppression
     Route: 048
  4. AMBIEN [Concomitant]
     Active Substance: ZOLPIDEM TARTRATE
  5. PROCARDIA (UNITED STATES) [Concomitant]

REACTIONS (3)
  - Visual impairment [Not Recovered/Not Resolved]
  - Off label use [Unknown]
  - Breast cancer [Unknown]
